FAERS Safety Report 5354613-3 (Version None)
Quarter: 2007Q2

REPORT INFORMATION
  Report Type: 
  Country: None (occurrence: None)
  Receive Date: 20070611
  Receipt Date: 20070524
  Transmission Date: 20071010
  Serious: Yes (Life-Threatening, Other)
  Sender: FDA-Public Use
  Company Number: DSA_29974_2007

PATIENT
  Sex: Female
  Weight: 78 kg

DRUGS (3)
  1. LORAX /00273201/ (LORAX) (NOT SPECIFIED) [Suspect]
     Dosage: (26 MG 1X ORAL)
     Route: 048
     Dates: start: 20070523, end: 20070523
  2. LORAX /00273201/ (LORAX) 2 MG (NOT SPECIFIED) [Suspect]
     Indication: INSOMNIA
     Dosage: (2 MG BID ORAL)
     Route: 048
     Dates: start: 20070301
  3. DIAZEPAM [Concomitant]

REACTIONS (7)
  - ACCIDENTAL OVERDOSE [None]
  - AGITATION [None]
  - CONFUSIONAL STATE [None]
  - DIZZINESS [None]
  - HALLUCINATION, VISUAL [None]
  - INSOMNIA [None]
  - SOMNOLENCE [None]
